FAERS Safety Report 5684541-5 (Version None)
Quarter: 2008Q1

REPORT INFORMATION
  Report Type: 
  Country: None (occurrence: None)
  Receive Date: 20080328
  Receipt Date: 20070216
  Transmission Date: 20080703
  Serious: Yes (Life-Threatening, Hospitalization)
  Sender: FDA-Public Use
  Company Number: US-BRISTOL-MYERS SQUIBB COMPANY-13657887

PATIENT
  Age: 53 Year
  Sex: Male

DRUGS (4)
  1. ERBITUX [Suspect]
     Indication: SQUAMOUS CELL CARCINOMA
     Route: 042
     Dates: start: 20070117, end: 20070117
  2. BENADRYL [Concomitant]
     Indication: PREMEDICATION
     Route: 042
  3. DEXAMETHASONE TAB [Concomitant]
     Indication: PREMEDICATION
     Route: 042
  4. ZANTAC [Concomitant]
     Indication: PREMEDICATION
     Route: 042

REACTIONS (3)
  - ANAPHYLACTIC SHOCK [None]
  - CARDIO-RESPIRATORY ARREST [None]
  - INFUSION RELATED REACTION [None]
